FAERS Safety Report 5830478-8 (Version None)
Quarter: 2008Q3

REPORT INFORMATION
  Report Type: 
  Country: None (occurrence: None)
  Receive Date: 20080801
  Receipt Date: 20070604
  Transmission Date: 20090109
  Serious: Yes (Hospitalization)
  Sender: FDA-Public Use
  Company Number: US-BRISTOL-MYERS SQUIBB COMPANY-13802335

PATIENT
  Age: 58 Year
  Sex: Male
  Weight: 95 kg

DRUGS (7)
  1. COUMADIN [Suspect]
     Indication: ATRIAL FIBRILLATION
     Route: 048
     Dates: start: 20030901
  2. ASPIRIN [Concomitant]
  3. SYNTHROID [Concomitant]
  4. AMIODARONE [Concomitant]
  5. ATENOLOL [Concomitant]
  6. LIPITOR [Concomitant]
  7. IMDUR [Concomitant]

REACTIONS (3)
  - DIZZINESS [None]
  - INTERNATIONAL NORMALISED RATIO INCREASED [None]
  - TRANSIENT ISCHAEMIC ATTACK [None]
